FAERS Safety Report 5233055-5 (Version None)
Quarter: 2007Q1

REPORT INFORMATION
  Report Type: 
  Country: None (occurrence: None)
  Receive Date: 20070207
  Receipt Date: 20070129
  Transmission Date: 20070707
  Serious: Yes (Other)
  Sender: FDA-Public Use
  Company Number: CA-PFIZER INC-2007008688

PATIENT
  Sex: Female

DRUGS (2)
  1. NEURONTIN [Suspect]
     Indication: PAIN
     Dosage: DAILY DOSE:200MG-FREQ:AT BEDTIME
     Route: 048
     Dates: start: 20070125, end: 20070130
  2. DESYREL [Suspect]
     Indication: INSOMNIA
     Dosage: DAILY DOSE:50MG-FREQ:AT BEDTIME
     Dates: start: 20070125, end: 20070129

REACTIONS (5)
  - DELIRIUM [None]
  - DIZZINESS [None]
  - FEELING HOT [None]
  - LOSS OF CONSCIOUSNESS [None]
  - SKIN DISCOLOURATION [None]
